FAERS Safety Report 10432426 (Version 1)
Quarter: 2014Q3

REPORT INFORMATION
  Report Type: Spontaneous
  Country: US (occurrence: US)
  Receive Date: 20140905
  Receipt Date: 20140905
  Transmission Date: 20150326
  Serious: No
  Sender: FDA-Public Use
  Company Number: US-ELI_LILLY_AND_COMPANY-US201408003418

PATIENT
  Sex: Male

DRUGS (1)
  1. CYRAMZA [Suspect]
     Active Substance: RAMUCIRUMAB
     Indication: NEOPLASM MALIGNANT
     Dosage: UNK, UNKNOWN
     Route: 065

REACTIONS (1)
  - Diarrhoea [Unknown]
